FAERS Safety Report 23115287 (Version 1)
Quarter: 2023Q4

REPORT INFORMATION
  Report Type: Report from Study
  Country: US (occurrence: US)
  Receive Date: 20231027
  Receipt Date: 20231027
  Transmission Date: 20240110
  Serious: Yes (Other)
  Sender: FDA-Public Use
  Company Number: US-MYLANLABS-2023M1100835

PATIENT
  Sex: Female
  Weight: 77.11 kg

DRUGS (1)
  1. GLATIRAMER ACETATE [Suspect]
     Active Substance: GLATIRAMER ACETATE
     Indication: Relapsing-remitting multiple sclerosis
     Dosage: 40 MILLIGRAM, 3XW
     Route: 065

REACTIONS (8)
  - Cerebrovascular accident [Unknown]
  - Autoscopy [Unknown]
  - Memory impairment [Unknown]
  - Amnesia [Unknown]
  - Muscular weakness [Unknown]
  - Anxiety [Unknown]
  - Asthenia [Unknown]
  - Vomiting [Unknown]
